FAERS Safety Report 8292213-6 (Version None)
Quarter: 2012Q2

REPORT INFORMATION
  Report Type: 
  Country: None (occurrence: None)
  Receive Date: 20120417
  Receipt Date: 20120411
  Transmission Date: 20120825
  Serious: Yes (Hospitalization, Other)
  Sender: FDA-Public Use
  Company Number: US-ELI_LILLY_AND_COMPANY-US201204003843

PATIENT
  Sex: Female

DRUGS (5)
  1. VITAMINS NOS [Concomitant]
  2. FORTEO [Suspect]
     Indication: OSTEOPOROSIS
     Dosage: 20 UG, QD
     Dates: start: 20120320
  3. TRAZODONE HCL [Concomitant]
     Indication: INSOMNIA
  4. SIMVASTATIN [Concomitant]
  5. PREVACID [Concomitant]

REACTIONS (9)
  - CHEST PAIN [None]
  - HEADACHE [None]
  - OESOPHAGEAL ULCER [None]
  - MUSCULAR WEAKNESS [None]
  - MUSCULOSKELETAL PAIN [None]
  - NECK PAIN [None]
  - GASTRIC ULCER [None]
  - HIATUS HERNIA [None]
  - BACK PAIN [None]
